FAERS Safety Report 6894330-1 (Version None)
Quarter: 2010Q3

REPORT INFORMATION
  Report Type: 
  Country: None (occurrence: None)
  Receive Date: 20100708
  Receipt Date: 20090922
  Transmission Date: 20110219
  Serious: Yes (Other)
  Sender: FDA-Public Use
  Company Number: 2009275576

PATIENT
  Age: 62 Year
  Sex: Female
  Weight: 72 kg

DRUGS (9)
  1. CHANTIX [Suspect]
     Indication: SMOKING CESSATION THERAPY
     Dosage: 0.5 MG
     Dates: start: 20090914, end: 20090920
  2. ACDTAMINOPHEN/ASPIRIN/CAFFEINE (ACETYLSALICYLIC ACID, CAFFEINE, PARACE [Concomitant]
  3. LISINOPRIL [Concomitant]
  4. SUCRALFATE [Concomitant]
  5. VITAMIN B12 [Concomitant]
  6. VITAMIN D [Concomitant]
  7. VITAMIN E [Concomitant]
  8. MULTIVITAMINS (ASCORBIC ACID, ERGOCALCIFEROL, FOLIC ACID, NICOTINAMIDE [Concomitant]
  9. FISH OIL [Concomitant]

REACTIONS (4)
  - HEADACHE [None]
  - HYPERSENSITIVITY [None]
  - LIP SWELLING [None]
  - OROPHARYNGEAL PAIN [None]
